FAERS Safety Report 10237308 (Version 2)
Quarter: 2014Q3

REPORT INFORMATION
  Report Type: Report from Study
  Country: CA (occurrence: CA)
  Receive Date: 20140613
  Receipt Date: 20140708
  Transmission Date: 20150326
  Serious: Yes (Hospitalization)
  Sender: FDA-Public Use
  Company Number: CA-ABBVIE-14P-028-1245507-00

PATIENT
  Sex: Female

DRUGS (1)
  1. HUMIRA [Suspect]
     Active Substance: ADALIMUMAB
     Indication: RHEUMATOID ARTHRITIS
     Route: 058
     Dates: start: 20110217

REACTIONS (5)
  - Cognitive disorder [Unknown]
  - Rheumatoid arthritis [Unknown]
  - Arthritis [Recovering/Resolving]
  - Chondrocalcinosis pyrophosphate [Not Recovered/Not Resolved]
  - Malaise [Unknown]
